FAERS Safety Report 25079727 (Version 2)
Quarter: 2025Q1

REPORT INFORMATION
  Report Type: Spontaneous
  Country: CL (occurrence: CL)
  Receive Date: 20250314
  Receipt Date: 20250325
  Transmission Date: 20250409
  Serious: Yes (Hospitalization)
  Sender: MERCK SHARP & DOHME LLC
  Company Number: CL-009507513-2233607

PATIENT
  Age: 74 Year
  Sex: Male
  Weight: 90 kg

DRUGS (10)
  1. KEYTRUDA [Suspect]
     Active Substance: PEMBROLIZUMAB
     Indication: Hodgkin^s disease
     Dosage: 200 MG EVERY 21 DAYS
     Route: 042
     Dates: start: 20240726
  2. ACYCLOVIR [Concomitant]
     Active Substance: ACYCLOVIR
  3. CARDIOASPIRINA [Concomitant]
     Active Substance: ASPIRIN
  4. DAPSONE [Concomitant]
     Active Substance: DAPSONE
  5. LEVOTHYROXINE SODIUM [Concomitant]
     Active Substance: LEVOTHYROXINE SODIUM
  6. Glimefor XR [Concomitant]
  7. OMEPRAZOLE [Concomitant]
     Active Substance: OMEPRAZOLE
  8. PREDNISONE [Concomitant]
     Active Substance: PREDNISONE
  9. SULIX [Concomitant]
  10. VITAMIN D [Concomitant]
     Active Substance: VITAMIN D NOS

REACTIONS (3)
  - Hospitalisation [Recovered/Resolved]
  - Tachycardia [Recovered/Resolved]
  - Pyrexia [Recovered/Resolved]

NARRATIVE: CASE EVENT DATE: 20240726
